FAERS Safety Report 6825434-7 (Version None)
Quarter: 2010Q3

REPORT INFORMATION
  Report Type: 
  Country: None (occurrence: None)
  Receive Date: 20100708
  Receipt Date: 20061211
  Transmission Date: 20110219
  Serious: No
  Sender: FDA-Public Use
  Company Number: US-PFIZER INC-2006153962

PATIENT
  Sex: Female
  Weight: 70.31 kg

DRUGS (6)
  1. CHANTIX [Suspect]
     Indication: EX-TOBACCO USER
     Route: 048
     Dates: start: 20061120
  2. LISINOPRIL [Concomitant]
  3. VYTORIN [Concomitant]
  4. TOPROL-XL [Concomitant]
  5. AVANDAMET [Concomitant]
  6. ALLOPURINOL [Concomitant]

REACTIONS (6)
  - COUGH [None]
  - INCREASED UPPER AIRWAY SECRETION [None]
  - NASAL CONGESTION [None]
  - NASOPHARYNGITIS [None]
  - ORAL HERPES [None]
  - OROPHARYNGEAL PAIN [None]
